FAERS Safety Report 20162882 (Version 2)
Quarter: 2022Q1

REPORT INFORMATION
  Report Type: Report from Study
  Country: US (occurrence: US)
  Receive Date: 20211209
  Receipt Date: 20220126
  Transmission Date: 20220423
  Serious: Yes (Other)
  Sender: FDA-Public Use
  Company Number: US-SANOFI-00438773

PATIENT
  Age: 66 Year
  Sex: Female

DRUGS (1)
  1. DUPILUMAB [Suspect]
     Active Substance: DUPILUMAB
     Indication: Asthma
     Dosage: 300 MG, QOW
     Route: 058
     Dates: start: 20200813

REACTIONS (8)
  - Spinal fracture [Recovered/Resolved]
  - COVID-19 [Recovering/Resolving]
  - SARS-CoV-2 test positive [Recovered/Resolved]
  - Feeling abnormal [Not Recovered/Not Resolved]
  - Muscle strain [Not Recovered/Not Resolved]
  - Painful respiration [Recovered/Resolved]
  - Product use issue [Unknown]
  - Inappropriate schedule of product administration [Unknown]

NARRATIVE: CASE EVENT DATE: 20200813
